FAERS Safety Report 5223089-9 (Version None)
Quarter: 2007Q1

REPORT INFORMATION
  Report Type: 
  Country: None (occurrence: None)
  Receive Date: 20070122
  Receipt Date: 20061228
  Transmission Date: 20070707
  Serious: Yes (Other)
  Sender: FDA-Public Use
  Company Number: 151696ISR

PATIENT
  Age: 43 Year
  Sex: Male

DRUGS (5)
  1. LOPERAMIDE HCL [Suspect]
     Indication: DIARRHOEA
     Dosage: 8 MG (2 MG, 4 IN 1 D)
     Dates: start: 20051228, end: 20060101
  2. INSULIN ASPART [Concomitant]
  3. CANDESARTAN CILEXETIL [Concomitant]
  4. ISOPHANE INSULIN [Concomitant]
  5. GLIMEPIRIDE [Concomitant]

REACTIONS (2)
  - DISORIENTATION [None]
  - PHOTOPSIA [None]
